FAERS Safety Report 23607695 (Version 1)
Quarter: 2024Q1

REPORT INFORMATION
  Report Type: Spontaneous
  Country: US (occurrence: US)
  Receive Date: 20240307
  Receipt Date: 20240307
  Transmission Date: 20240409
  Serious: No
  Sender: FDA-Public Use
  Company Number: US-002147023-NVSC2024US049545

PATIENT
  Weight: 48 kg

DRUGS (1)
  1. KYMRIAH [Suspect]
     Active Substance: TISAGENLECLEUCEL
     Indication: B-cell type acute leukaemia
     Dosage: UNK, (ONE SINGLE DOSE)
     Route: 042
     Dates: start: 20240206, end: 20240206

REACTIONS (1)
  - Viral infection [Unknown]
